FAERS Safety Report 7259488-3 (Version None)
Quarter: 2011Q1

REPORT INFORMATION
  Report Type: 
  Country: None (occurrence: None)
  Receive Date: 20110129
  Receipt Date: 20101222
  Transmission Date: 20110831
  Serious: No
  Sender: FDA-Public Use
  Company Number: US-MYLANLABS-2010S1023513

PATIENT
  Age: 33 Year
  Sex: Female

DRUGS (8)
  1. LAMOTRIGINE [Suspect]
     Indication: BIPOLAR DISORDER
     Route: 048
     Dates: start: 20100901, end: 20101001
  2. LAMOTRIGINE [Suspect]
     Route: 048
     Dates: start: 20101112, end: 20101216
  3. LAMOTRIGINE [Suspect]
     Route: 048
     Dates: start: 20101001, end: 20101001
  4. BUPROPION HCL [Concomitant]
     Indication: BIPOLAR DISORDER
     Route: 048
  5. LAMOTRIGINE [Suspect]
     Route: 048
     Dates: start: 20101217
  6. MULTIVITAMIN [Concomitant]
  7. VALTREX [Concomitant]
     Dosage: PRN - LAST USED BEGINNING OF DEC-2010
     Route: 048
  8. LAMOTRIGINE [Suspect]
     Route: 048
     Dates: start: 20101217

REACTIONS (5)
  - TREMOR [None]
  - DYSKINESIA [None]
  - FATIGUE [None]
  - ARTHRALGIA [None]
  - HEADACHE [None]
